FAERS Safety Report 5773298-5 (Version None)
Quarter: 2008Q2

REPORT INFORMATION
  Report Type: 
  Country: None (occurrence: None)
  Receive Date: 20080601
  Receipt Date: 20080320
  Transmission Date: 20081010
  Serious: No
  Sender: FDA-Public Use
  Company Number: US200803005562

PATIENT
  Age: 72 Year
  Sex: Female
  Weight: 99.8 kg

DRUGS (15)
  1. BYETTA [Suspect]
     Indication: TYPE 2 DIABETES MELLITUS
     Dosage: 5 UG, 2/D, SUBCUTANEOUS ; 10 UG, 2/D, SUBCUTANEOUS ; 5 UG, 2/D, SUBCUTANEOUS
     Route: 058
     Dates: start: 20070101, end: 20070101
  2. BYETTA [Suspect]
     Indication: TYPE 2 DIABETES MELLITUS
     Dosage: 5 UG, 2/D, SUBCUTANEOUS ; 10 UG, 2/D, SUBCUTANEOUS ; 5 UG, 2/D, SUBCUTANEOUS
     Route: 058
     Dates: start: 20070101, end: 20070101
  3. BYETTA [Suspect]
     Indication: TYPE 2 DIABETES MELLITUS
     Dosage: 5 UG, 2/D, SUBCUTANEOUS ; 10 UG, 2/D, SUBCUTANEOUS ; 5 UG, 2/D, SUBCUTANEOUS
     Route: 058
     Dates: start: 20080301
  4. LANTUS [Concomitant]
  5. GLYBURIDE [Concomitant]
  6. ACTOS [Concomitant]
  7. DIGOXIN [Concomitant]
  8. VERAPAMIL [Concomitant]
  9. DIOVAN (HYDROCHLOROTHIAZIDE, VALSARTAN) [Concomitant]
  10. CLONIDINE [Concomitant]
  11. COLCHICINE (COLCHICINE) [Concomitant]
  12. POTASSIUM (POTASSIUM) [Concomitant]
  13. TORSEMIDE (TORSEMIDE) [Concomitant]
  14. NITROGLYCERIN [Concomitant]
  15. CHOLESTEROL- AND TRIGLYCERIDE REDUCERS [Concomitant]

REACTIONS (14)
  - ARTHRALGIA [None]
  - ARTHRITIS [None]
  - BLOOD GLUCOSE DECREASED [None]
  - DECREASED APPETITE [None]
  - DIZZINESS [None]
  - ERUCTATION [None]
  - GAIT DISTURBANCE [None]
  - HYPERHIDROSIS [None]
  - JOINT INJURY [None]
  - JOINT SWELLING [None]
  - JOINT WARMTH [None]
  - LIGAMENT RUPTURE [None]
  - NAUSEA [None]
  - TREMOR [None]
